FAERS Safety Report 7440724-5 (Version None)
Quarter: 2011Q2

REPORT INFORMATION
  Report Type: 
  Country: None (occurrence: None)
  Receive Date: 20110427
  Receipt Date: 20110418
  Transmission Date: 20111010
  Serious: Yes (Hospitalization)
  Sender: FDA-Public Use
  Company Number: JP-AMGEN-JPNCT2010011103

PATIENT
  Age: 72 Year
  Sex: Male
  Weight: 54 kg

DRUGS (13)
  1. OXALIPLATIN [Concomitant]
     Indication: COLORECTAL CANCER
     Dosage: 130 MG, Q2WK
     Dates: start: 20101021
  2. RINDERON-VG [Concomitant]
     Route: 062
  3. FLUOROURACIL [Concomitant]
     Dosage: 3500 MG, Q2WK
     Route: 041
     Dates: start: 20101021
  4. PANITUMUMAB [Suspect]
     Dosage: 1.8 MG/KG, Q2WK
     Route: 041
     Dates: start: 20101221
  5. HIRUDOID [Concomitant]
     Route: 062
  6. HIRUDOID SOFT [Concomitant]
     Route: 062
  7. ANTIHISTAMINES [Concomitant]
     Indication: PROPHYLAXIS
     Route: 065
  8. CORTICOSTEROIDS [Concomitant]
     Indication: PROPHYLAXIS
     Route: 065
  9. ALMETA [Concomitant]
     Route: 062
  10. PANITUMUMAB [Suspect]
     Indication: COLORECTAL CANCER
     Dosage: 6 MG/KG, Q2WK
     Route: 041
     Dates: start: 20101021, end: 20101202
  11. CALCIUM LEVOFOLINATE [Concomitant]
     Indication: COLORECTAL CANCER
     Dosage: 300 MG, Q2WK
     Route: 041
     Dates: start: 20101021
  12. FLUOROURACIL [Concomitant]
     Indication: COLORECTAL CANCER
     Dosage: 600 MG, Q2WK
     Route: 040
     Dates: start: 20101021
  13. MYSER [Concomitant]
     Route: 062

REACTIONS (3)
  - DUODENAL ULCER [None]
  - STOMATITIS [None]
  - DERMATITIS ACNEIFORM [None]
